FAERS Safety Report 4846908-4 (Version None)
Quarter: 2005Q4

REPORT INFORMATION
  Report Type: 
  Country: None (occurrence: None)
  Receive Date: 20051202
  Receipt Date: 20051121
  Transmission Date: 20060501
  Serious: Yes (Hospitalization, Disabling)
  Sender: FDA-Public Use
  Company Number: 2005159710

PATIENT
  Age: 62 Year
  Sex: Male

DRUGS (8)
  1. LYRICA [Suspect]
     Indication: PAIN IN EXTREMITY
     Dosage: 300 MG (150 MG, 2 IN 1 D) ORAL
     Route: 048
     Dates: start: 20051028, end: 20051028
  2. TEGRETOL [Concomitant]
  3. FOLIC ACID [Concomitant]
  4. INSULIN [Concomitant]
  5. LISINOPRIL [Concomitant]
  6. FUROSEMIDE [Concomitant]
  7. PRAVASTATIN [Concomitant]
  8. CREON [Concomitant]

REACTIONS (4)
  - BALANCE DISORDER [None]
  - DIZZINESS [None]
  - FEELING DRUNK [None]
  - MALAISE [None]
